FAERS Safety Report 6451081-5 (Version None)
Quarter: 2009Q4

REPORT INFORMATION
  Report Type: 
  Country: None (occurrence: None)
  Receive Date: 20091123
  Receipt Date: 20091111
  Transmission Date: 20100525
  Serious: Yes (Other)
  Sender: FDA-Public Use
  Company Number: US-PFIZER INC-2009297346

PATIENT
  Sex: Male

DRUGS (8)
  1. SUTENT [Suspect]
     Indication: RENAL CANCER
     Dosage: 12.5 MG, 4X/DAY, 1 MONTH ON/2 WKS OFF
     Dates: start: 20090101
  2. GABAPENTIN [Concomitant]
     Indication: TRIGEMINAL NEURALGIA
     Dosage: 12.5 MG, 4X/DAY
     Dates: start: 20090101
  3. FUROSEMIDE [Concomitant]
     Indication: FLUID RETENTION
  4. RANITIDINE [Concomitant]
     Dosage: FREQUENCY: 2X/DAY,
  5. WARFARIN [Concomitant]
     Dosage: 1 MG, UNK
  6. SULINDAC [Concomitant]
     Indication: ARTHRITIS
     Dosage: UNK
  7. DICYCLOMINE [Concomitant]
     Indication: ABDOMINAL PAIN UPPER
     Dosage: FREQUENCY: AS NEEDED,
  8. PROPOXYPHENE HCL CAP [Concomitant]
     Indication: PAIN IN EXTREMITY
     Dosage: UNK

REACTIONS (3)
  - ANAL FISSURE [None]
  - DERMATITIS DIAPER [None]
  - RECTAL HAEMORRHAGE [None]
